FAERS Safety Report 6073010-9 (Version None)
Quarter: 2009Q1

REPORT INFORMATION
  Report Type: 
  Country: None (occurrence: None)
  Receive Date: 20090209
  Receipt Date: 20090209
  Transmission Date: 20090719
  Serious: No
  Sender: FDA-Public Use
  Company Number: None

PATIENT
  Age: 58 Year
  Sex: Female

DRUGS (4)
  1. SINGULAIR [Suspect]
     Indication: SINUSITIS
     Dosage: ORAL; 10.0 MILLIGRAM
     Route: 048
  2. OXYMETALOZINE [Concomitant]
  3. TOLTERODINE [Concomitant]
  4. LORATADINE [Concomitant]

REACTIONS (2)
  - DEPRESSED MOOD [None]
  - DEPRESSION [None]
